FAERS Safety Report 11659752 (Version 1)
Quarter: 2015Q4

REPORT INFORMATION
  Report Type: Spontaneous
  Country: US (occurrence: None)
  Receive Date: 20151023
  Receipt Date: 20151023
  Transmission Date: 20160304
  Serious: Yes (Other)
  Sender: FDA-Public Use
  Company Number: None

PATIENT
  Age: 72 Year
  Sex: Female
  Weight: 78.02 kg

DRUGS (8)
  1. PROBIOTICS [Concomitant]
     Active Substance: PROBIOTICS NOS
  2. LORATIDINE [Concomitant]
     Active Substance: LORATADINE
  3. PANTOPRAZOLE [Concomitant]
     Active Substance: PANTOPRAZOLE SODIUM
  4. FISH OIL [Concomitant]
     Active Substance: FISH OIL
  5. CRESTOR [Concomitant]
     Active Substance: ROSUVASTATIN CALCIUM
  6. CALCIUM +D [Concomitant]
     Active Substance: CALCIUM\VITAMIN D
  7. NIACIN. [Concomitant]
     Active Substance: NIACIN
  8. LEVOFLOXACIN. [Suspect]
     Active Substance: LEVOFLOXACIN
     Indication: SINUS DISORDER
     Dosage: 1 TABLET PER DAY FOR 7 DAYS 1 X DAY BY MOUTH
     Route: 048
     Dates: start: 20150928, end: 20150928

REACTIONS (4)
  - Heart rate increased [None]
  - Chest pain [None]
  - Urticaria [None]
  - Syncope [None]

NARRATIVE: CASE EVENT DATE: 20150928
